FAERS Safety Report 5914569-9 (Version None)
Quarter: 2008Q4

REPORT INFORMATION
  Report Type: 
  Country: None (occurrence: None)
  Receive Date: 20081010
  Receipt Date: 20081003
  Transmission Date: 20090506
  Serious: Yes (Other)
  Sender: FDA-Public Use
  Company Number: US-RANBAXY-2008RR-18446

PATIENT
  Age: 21 Month
  Sex: Female

DRUGS (12)
  1. ACYCLOVIR [Suspect]
     Indication: HERPES ZOSTER
     Dosage: 60 MG/KG, QD
     Route: 042
  2. ACYCLOVIR [Suspect]
     Dosage: UNK MG/KG, QD
     Route: 048
  3. ACYCLOVIR [Suspect]
     Dosage: UNK MG/KG, QD
     Route: 048
  4. ACYCLOVIR [Suspect]
     Dosage: UNK
     Route: 042
  5. ACYCLOVIR SODIUM [Suspect]
     Indication: HERPES ZOSTER
     Dosage: 90 MG/KG, QD
     Route: 048
  6. ACYCLOVIR SODIUM [Suspect]
     Dosage: 30 MG/KG, QD
  7. VARICELLA ZOSTER VIRUS VACCINE [Suspect]
  8. CYCLOPHOSPHAMIDE [Concomitant]
     Indication: NEUROBLASTOMA
  9. DOXORUBICIN HCL [Concomitant]
     Indication: NEUROBLASTOMA
  10. VINCRISTINE [Concomitant]
     Indication: NEUROBLASTOMA
  11. CISPLATIN [Concomitant]
     Indication: NEUROBLASTOMA
  12. ETOPOSIDE [Concomitant]
     Indication: NEUROBLASTOMA

REACTIONS (2)
  - DRUG RESISTANCE [None]
  - HERPES ZOSTER [None]
